FAERS Safety Report 25469558 (Version 2)
Quarter: 2025Q3

REPORT INFORMATION
  Report Type: Spontaneous
  Country: JP (occurrence: JP)
  Receive Date: 20250623
  Receipt Date: 20250709
  Transmission Date: 20251020
  Serious: Yes (Other)
  Sender: REGENERON
  Company Number: JP-BAYER-2025A071468

PATIENT
  Age: 80 Year
  Sex: Male

DRUGS (5)
  1. EYLEA HD [Suspect]
     Active Substance: AFLIBERCEPT
     Indication: Neovascular age-related macular degeneration
     Route: 031
     Dates: start: 20250319, end: 20250319
  2. EYLEA HD [Suspect]
     Active Substance: AFLIBERCEPT
     Route: 031
     Dates: start: 20250521, end: 20250521
  3. EYLEA [Concomitant]
     Active Substance: AFLIBERCEPT
     Indication: Neovascular age-related macular degeneration
     Dates: start: 20131121
  4. EYLEA [Concomitant]
     Active Substance: AFLIBERCEPT
  5. BEOVU [Concomitant]
     Active Substance: BROLUCIZUMAB-DBLL
     Indication: Neovascular age-related macular degeneration
     Dates: start: 20131121

REACTIONS (7)
  - Vitreous prolapse [Recovered/Resolved]
  - Uveitis [Unknown]
  - Vitreous detachment [Not Recovered/Not Resolved]
  - Vitreous opacities [Recovering/Resolving]
  - Iritis [Recovered/Resolved]
  - Vision blurred [Unknown]
  - Vitreous floaters [Recovered/Resolved with Sequelae]

NARRATIVE: CASE EVENT DATE: 20250521
